FAERS Safety Report 24109313 (Version 1)
Quarter: 2024Q3

REPORT INFORMATION
  Report Type: Spontaneous
  Country: GB (occurrence: GB)
  Receive Date: 20240718
  Receipt Date: 20240718
  Transmission Date: 20241017
  Serious: Yes (Other)
  Sender: MYLAN
  Company Number: GB-MYLANLABS-2024M1066211

PATIENT
  Age: 26 Year
  Sex: Male

DRUGS (1)
  1. TERBINAFINE [Suspect]
     Active Substance: TERBINAFINE
     Indication: Trichophytosis
     Dosage: UNK, RECEIVED FOR 3 WEEKS
     Route: 061
     Dates: start: 202310

REACTIONS (2)
  - Drug resistance [Unknown]
  - Drug ineffective [Unknown]
